FAERS Safety Report 25407078 (Version 1)
Quarter: 2025Q2

REPORT INFORMATION
  Report Type: Spontaneous
  Country: RO (occurrence: RO)
  Receive Date: 20250606
  Receipt Date: 20250606
  Transmission Date: 20250717
  Serious: Yes (Other)
  Sender: ALEXION PHARMACEUTICALS
  Company Number: RO-AstraZeneca-CH-00754851A

PATIENT
  Age: 61 Year

DRUGS (1)
  1. DURVALUMAB [Suspect]
     Active Substance: DURVALUMAB
     Indication: Non-small cell lung cancer
     Dosage: 1500 MILLIGRAM, Q4W

REACTIONS (5)
  - Pulmonary embolism [Recovered/Resolved]
  - Malignant neoplasm progression [Unknown]
  - Pneumonia [Unknown]
  - Anaemia [Unknown]
  - Hypotension [Unknown]
